FAERS Safety Report 24031318 (Version 1)
Quarter: 2024Q2

REPORT INFORMATION
  Report Type: Spontaneous
  Country: FR (occurrence: FR)
  Receive Date: 20240629
  Receipt Date: 20240629
  Transmission Date: 20240715
  Serious: Yes (Other)
  Sender: FDA-Public Use
  Company Number: FR-BRISTOL-MYERS SQUIBB COMPANY-2024-101202

PATIENT
  Age: 4 Year
  Sex: Female

DRUGS (2)
  1. REPOTRECTINIB [Suspect]
     Active Substance: REPOTRECTINIB
     Indication: Congenital fibrosarcoma
     Dosage: DOSE : UNAVAILABLE;     FREQ : UNAVAILABLE
  2. LAROTRECTINIB [Suspect]
     Active Substance: LAROTRECTINIB
     Indication: Congenital fibrosarcoma

REACTIONS (1)
  - Hypertensive encephalopathy [Unknown]
